FAERS Safety Report 5794957-4 (Version None)
Quarter: 2008Q2

REPORT INFORMATION
  Report Type: 
  Country: None (occurrence: None)
  Receive Date: 20080627
  Receipt Date: 20080627
  Transmission Date: 20081010
  Serious: Yes (Disabling)
  Sender: FDA-Public Use
  Company Number: None

PATIENT
  Sex: Female

DRUGS (2)
  1. LIPITOR [Suspect]
     Indication: HYPERLIPIDAEMIA
     Dosage: 10 MG QD PO, 1-2 YEARS
     Route: 048
  2. VERAPAMIL [Suspect]
     Indication: HYPERTENSION
     Dosage: 240 MG QD PO

REACTIONS (5)
  - CHROMATURIA [None]
  - DRUG INEFFECTIVE [None]
  - FOOD ALLERGY [None]
  - LIVER FUNCTION TEST ABNORMAL [None]
  - PRURITUS [None]
